FAERS Safety Report 10432720 (Version 1)
Quarter: 2014Q3

REPORT INFORMATION
  Report Type: Spontaneous
  Country: US (occurrence: None)
  Receive Date: 20140904
  Receipt Date: 20140904
  Transmission Date: 20150326
  Serious: Yes (Other)
  Sender: FDA-Public Use
  Company Number: None

PATIENT
  Age: 31 Year

DRUGS (1)
  1. VEDOLIZUMAB [Suspect]
     Active Substance: VEDOLIZUMAB
     Indication: CROHN^S DISEASE
     Route: 042
     Dates: start: 20140818

REACTIONS (5)
  - Back pain [None]
  - Nausea [None]
  - Dyspnoea [None]
  - Palpitations [None]
  - Flushing [None]

NARRATIVE: CASE EVENT DATE: 20140818
